FAERS Safety Report 7784634-2 (Version None)
Quarter: 2011Q3

REPORT INFORMATION
  Report Type: 
  Country: None (occurrence: None)
  Receive Date: 20110928
  Receipt Date: 20110919
  Transmission Date: 20111222
  Serious: Yes (Other)
  Sender: FDA-Public Use
  Company Number: US-BRISTOL-MYERS SQUIBB COMPANY-16098725

PATIENT
  Age: 36 Year
  Sex: Male

DRUGS (3)
  1. LOXAPINE [Suspect]
  2. ARIPIPRAZOLE [Suspect]
     Indication: HALLUCINATION, AUDITORY
  3. ZIPRASIDONE HYDROCHLORIDE [Suspect]

REACTIONS (2)
  - PSYCHOTIC DISORDER [None]
  - SEDATION [None]
